FAERS Safety Report 11052771 (Version 1)
Quarter: 2015Q2

REPORT INFORMATION
  Report Type: Spontaneous
  Country: DE (occurrence: DE)
  Receive Date: 20150421
  Receipt Date: 20150421
  Transmission Date: 20150821
  Serious: Yes (Other)
  Sender: FDA-Public Use
  Company Number: US-ASTRAZENECA-2015SE35672

PATIENT
  Age: 10 Week
  Sex: Male

DRUGS (1)
  1. SYNAGIS [Suspect]
     Active Substance: PALIVIZUMAB
     Indication: ANTIVIRAL PROPHYLAXIS
     Route: 065

REACTIONS (10)
  - Pneumonia respiratory syncytial viral [Unknown]
  - Apnoea [Unknown]
  - Sneezing [Unknown]
  - Umbilical hernia [Unknown]
  - Granulocytopenia [Unknown]
  - Respiratory syncytial virus test positive [Unknown]
  - Oral candidiasis [Unknown]
  - Bradycardia [Unknown]
  - Respiratory failure [Unknown]
  - Cough [Unknown]
